FAERS Safety Report 17963069 (Version 1)
Quarter: 2020Q2

REPORT INFORMATION
  Report Type: Report from Study
  Country: None (occurrence: US)
  Receive Date: 20200630
  Receipt Date: 20200630
  Transmission Date: 20200714
  Serious: Yes (Other)
  Sender: FDA-Public Use
  Company Number: US-BIOVITRUM-2019US3706

PATIENT
  Age: 36 Year
  Sex: Female

DRUGS (1)
  1. KINERET [Suspect]
     Active Substance: ANAKINRA
     Indication: FAMILIAL MEDITERRANEAN FEVER
     Route: 058
     Dates: start: 20190409

REACTIONS (5)
  - Product dose omission [Unknown]
  - Off label use [Unknown]
  - Pain [Unknown]
  - Swelling [Unknown]
  - Cholestasis [Unknown]

NARRATIVE: CASE EVENT DATE: 20190409
